FAERS Safety Report 8225042-X (Version None)
Quarter: 2012Q1

REPORT INFORMATION
  Report Type: 
  Country: None (occurrence: None)
  Receive Date: 20120321
  Receipt Date: 20120309
  Transmission Date: 20120608
  Serious: Yes (Hospitalization)
  Sender: FDA-Public Use
  Company Number: US-ROCHE-1047981

PATIENT
  Sex: Female

DRUGS (7)
  1. LORTAB [Concomitant]
     Indication: PAIN
  2. AVASTIN [Suspect]
     Indication: SMALL CELL LUNG CANCER STAGE UNSPECIFIED
     Dosage: LAST DOSE PRIOR TO SAE 14 FEB 2012
     Dates: start: 20100901
  3. DIAZEPAM [Concomitant]
  4. FOLIC ACID [Concomitant]
     Dosage: PRE LX DRUG
     Dates: start: 20100901
  5. VITAMIN B-12 [Concomitant]
     Dosage: PRE LX DRUG
     Dates: start: 20100901
  6. ZOLOFT [Concomitant]
     Indication: DEPRESSION
  7. PEMETREXED DISODIUM [Suspect]
     Indication: SMALL CELL LUNG CANCER STAGE UNSPECIFIED
     Dosage: LAST DOSE PRIOR TO SAE 14 FEB 2012
     Route: 042
     Dates: start: 20100901

REACTIONS (1)
  - CONVULSION [None]
